FAERS Safety Report 4691301-0 (Version None)
Quarter: 2005Q2

REPORT INFORMATION
  Report Type: 
  Country: None (occurrence: None)
  Receive Date: 20050614
  Receipt Date: 20050531
  Transmission Date: 20051028
  Serious: Yes (Other)
  Sender: FDA-Public Use
  Company Number: 2005081488

PATIENT
  Sex: Female
  Weight: 85.7298 kg

DRUGS (11)
  1. CELEBREX [Suspect]
     Indication: OSTEOARTHRITIS
     Dosage: 400 MG 9200 MG, 2 IN 1 D), ORAL
     Route: 048
  2. CELEBREX [Suspect]
     Indication: RHEUMATOID ARTHRITIS
     Dosage: 400 MG 9200 MG, 2 IN 1 D), ORAL
     Route: 048
  3. BEXTRA [Suspect]
     Indication: OSTEOARTHRITIS
  4. BEXTRA [Suspect]
     Indication: RHEUMATOID ARTHRITIS
  5. TRIAMTERENE (TRIAMTERENE) [Concomitant]
  6. HYDROCHLOROTHIAZIDE [Concomitant]
  7. DARVOCET-N (DEXTROPROXYPHENE NAPSILATE, PARACETAMOL) [Concomitant]
  8. DEMEROL [Concomitant]
  9. NEXIUM [Concomitant]
  10. OXCARBAZEPINE (OXCARBAZEPINE) [Concomitant]
  11. TIGAN [Concomitant]

REACTIONS (5)
  - BACK PAIN [None]
  - DIFFICULTY IN WALKING [None]
  - KNEE ARTHROPLASTY [None]
  - MEDICAL DEVICE COMPLICATION [None]
  - PAIN [None]
